FAERS Safety Report 19047090 (Version 1)
Quarter: 2021Q1

REPORT INFORMATION
  Report Type: Spontaneous
  Country: US (occurrence: US)
  Receive Date: 20210323
  Receipt Date: 20210323
  Transmission Date: 20210420
  Serious: Yes (Hospitalization)
  Sender: FDA-Public Use
  Company Number: US-ASTRAZENECA-2021A164082

PATIENT
  Age: 26339 Day
  Sex: Female
  Weight: 64.4 kg

DRUGS (1)
  1. FASENRA [Suspect]
     Active Substance: BENRALIZUMAB
     Indication: ASTHMA
     Route: 058
     Dates: start: 20200924

REACTIONS (2)
  - Bronchitis [Unknown]
  - Bronchitis chronic [Unknown]

NARRATIVE: CASE EVENT DATE: 20201207
